FAERS Safety Report 25396192 (Version 2)
Quarter: 2025Q2

REPORT INFORMATION
  Report Type: Spontaneous
  Country: US (occurrence: US)
  Receive Date: 20250604
  Receipt Date: 20250613
  Transmission Date: 20250716
  Serious: Yes (Other)
  Sender: AMGEN
  Company Number: US-AMGEN-USASP2025103704

PATIENT
  Age: 60 Year
  Sex: Female

DRUGS (2)
  1. REPATHA [Suspect]
     Active Substance: EVOLOCUMAB
     Indication: Type IIa hyperlipidaemia
     Dosage: UNK UNK, Q2WK
     Route: 065
     Dates: end: 20250510
  2. ASPIRIN [Concomitant]
     Active Substance: ASPIRIN
     Indication: Lipoprotein (a) increased

REACTIONS (1)
  - Rash erythematous [Recovering/Resolving]
